FAERS Safety Report 7794833-1 (Version None)
Quarter: 2011Q4

REPORT INFORMATION
  Report Type: 
  Country: None (occurrence: None)
  Receive Date: 20111004
  Receipt Date: 20110922
  Transmission Date: 20120403
  Serious: Yes (Death, Other)
  Sender: FDA-Public Use
  Company Number: US-MYLANLABS-2011S1020165

PATIENT
  Age: 90 Year
  Sex: Male

DRUGS (4)
  1. CARVEDILOL [Concomitant]
     Indication: HYPERTENSION
  2. KETOCONAZOLE [Concomitant]
     Indication: PROSTATE CANCER
  3. DOXAZOSIN MESYLATE [Suspect]
     Indication: BLADDER DISORDER
  4. HYDROCORTISONE [Suspect]
     Indication: PROSTATE CANCER

REACTIONS (16)
  - DEATH [None]
  - ORTHOSTATIC HYPOTENSION [None]
  - DRUG ADMINISTRATION ERROR [None]
  - RENAL FAILURE [None]
  - HYPOXIA [None]
  - BLOOD GLUCOSE INCREASED [None]
  - HYDRONEPHROSIS [None]
  - DYSPNOEA [None]
  - GAIT DISTURBANCE [None]
  - SEPSIS [None]
  - URINARY TRACT INFECTION [None]
  - HAEMATOCRIT DECREASED [None]
  - ASTHENIA [None]
  - PLEURAL EFFUSION [None]
  - BLOOD CREATININE INCREASED [None]
  - DEHYDRATION [None]
